FAERS Safety Report 11785899 (Version 4)
Quarter: 2015Q4

REPORT INFORMATION
  Report Type: Spontaneous
  Country: JP (occurrence: JP)
  Receive Date: 20151130
  Receipt Date: 20151211
  Transmission Date: 20160305
  Serious: Yes (Hospitalization)
  Sender: FDA-Public Use
  Company Number: JP-PFIZER INC-2015408769

PATIENT
  Age: 62 Year
  Sex: Male
  Weight: 61 kg

DRUGS (17)
  1. CAMPTO [Suspect]
     Active Substance: IRINOTECAN
     Dosage: UNSPECIFIED DOSE, 1XDAY, CYCLIC, CYCLE 2
     Route: 041
     Dates: start: 20151014, end: 20151014
  2. ISOVORIN [Suspect]
     Active Substance: LEUCOVORIN CALCIUM
     Indication: COLON CANCER
     Dosage: 323.8 MG, 1X/DAY, CYCLE 1
     Route: 041
     Dates: start: 20150916, end: 20150916
  3. ZOSYN [Concomitant]
     Active Substance: PIPERACILLIN SODIUM\TAZOBACTAM SODIUM
     Indication: PNEUMONIA
     Dosage: UNK
     Dates: start: 20151117, end: 20151124
  4. AVASTIN [Suspect]
     Active Substance: BEVACIZUMAB
     Indication: COLON CANCER
     Dosage: 5 MG/KG, 1X/DAY, CYCLE 1
     Route: 041
     Dates: start: 20150916, end: 20150916
  5. ISOVORIN [Suspect]
     Active Substance: LEUCOVORIN CALCIUM
     Dosage: 323.8 MG, 1X/DAY, CYCLE 3
     Route: 041
     Dates: start: 20151028
  6. 5-FU [Suspect]
     Active Substance: FLUOROURACIL
     Dosage: UNSPECIFIED DOSE, ALTERNATE DAY, (ONCE IN 2DAYS), CYCLE 3
     Route: 041
     Dates: start: 20151028
  7. AVASTIN [Suspect]
     Active Substance: BEVACIZUMAB
     Dosage: 5 MG/KG, 1X/DAY, CYCLE 2
     Route: 041
     Dates: start: 20151014, end: 20151014
  8. CAMPTO [Suspect]
     Active Substance: IRINOTECAN
     Indication: COLON CANCER
     Dosage: 267.1 MG, 1 XDAY CYCLIC, CYCLE 1
     Route: 041
     Dates: start: 20150916, end: 20150916
  9. CAMPTO [Suspect]
     Active Substance: IRINOTECAN
     Dosage: UNSPECIFIED DOSE, 1XDAY, CYCLIC, CYCLE 3
     Route: 041
     Dates: start: 20151028
  10. ISOVORIN [Suspect]
     Active Substance: LEUCOVORIN CALCIUM
     Dosage: 323.8 MG, 1X/DAY, CYCLE 2
     Route: 041
     Dates: start: 20151014, end: 20151014
  11. ELPLAT [Suspect]
     Active Substance: OXALIPLATIN
     Dosage: UNSPECIFIED DOSE, 1XDAY, CYCLE 3
     Route: 041
     Dates: start: 20151028
  12. 5-FU [Suspect]
     Active Substance: FLUOROURACIL
     Indication: COLON CANCER
     Dosage: 5180.8 MG, ALTERNATE DAY, (ONCE IN 2DAYS), CYCLE 1
     Route: 041
     Dates: start: 20150916, end: 20150916
  13. ELPLAT [Suspect]
     Active Substance: OXALIPLATIN
     Indication: COLON CANCER
     Dosage: 137.6 MG,1XDAY CYCLIC, CYCLE 1
     Route: 041
     Dates: start: 20150916, end: 20150916
  14. AVASTIN [Suspect]
     Active Substance: BEVACIZUMAB
     Dosage: 5 MG/KG, 1X/DAY, CYCLE 3
     Route: 041
     Dates: start: 20151028
  15. MAGMITT [Concomitant]
     Active Substance: MAGNESIUM OXIDE
     Dosage: UNK
     Dates: start: 20150914
  16. ELPLAT [Suspect]
     Active Substance: OXALIPLATIN
     Dosage: 137.6 MG, 1X/DAY, CYCLE 2
     Route: 041
     Dates: start: 20151014, end: 20151014
  17. 5-FU [Suspect]
     Active Substance: FLUOROURACIL
     Dosage: 5180.8 MG, ALTERNATE DAY, (ONCE IN 2DAYS), CYCLE 2
     Route: 041
     Dates: start: 20151014, end: 20151014

REACTIONS (3)
  - Neutrophil count decreased [Unknown]
  - Pneumonia [Recovered/Resolved]
  - Decreased appetite [Unknown]

NARRATIVE: CASE EVENT DATE: 20151117
